FAERS Safety Report 4784190-7 (Version None)
Quarter: 2005Q3

REPORT INFORMATION
  Report Type: 
  Country: None (occurrence: None)
  Receive Date: 20050928
  Receipt Date: 20050912
  Transmission Date: 20060218
  Serious: Yes (Hospitalization)
  Sender: FDA-Public Use
  Company Number: 2005P1000434

PATIENT
  Age: 40 Year
  Sex: Female

DRUGS (1)
  1. NICARDIPINE HCL [Suspect]

REACTIONS (2)
  - ANGIONEUROTIC OEDEMA [None]
  - INFUSION RELATED REACTION [None]
